FAERS Safety Report 14790666 (Version 1)
Quarter: 2018Q2

REPORT INFORMATION
  Report Type: Spontaneous
  Country: US (occurrence: US)
  Receive Date: 20180413
  Receipt Date: 20180413
  Transmission Date: 20180711
  Serious: Yes (Hospitalization)
  Sender: FDA-Public Use
  Company Number: None

PATIENT
  Sex: Female

DRUGS (8)
  1. LORAZEPAM, FERROUS SULF, SPIRIVA [Concomitant]
  2. BARACLUDE [Suspect]
     Active Substance: ENTECAVIR
     Indication: CHRONIC HEPATITIS B
     Route: 048
     Dates: start: 20120622
  3. VENTOLIN, CLONIDINE, BACLOFEN [Concomitant]
  4. ATIVAN, ASMANEX, ALBUTEROL [Concomitant]
  5. SYMBICORT, LITHIUM CARB [Concomitant]
  6. PROMETHAZINE, GABAPENTIN, FOLIC ACID [Concomitant]
  7. NICOTINE, HYDROCO/APAP, PRAZOSIN [Concomitant]
  8. MINIPRESS, LIPITOR, LANSOPRAZOLE [Concomitant]

REACTIONS (1)
  - Mental disorder [None]
